FAERS Safety Report 6662254-0 (Version None)
Quarter: 2010Q1

REPORT INFORMATION
  Report Type: 
  Country: None (occurrence: None)
  Receive Date: 20100329
  Receipt Date: 20100312
  Transmission Date: 20100710
  Serious: Yes (Hospitalization)
  Sender: FDA-Public Use
  Company Number: 1-21907833

PATIENT
  Age: 17 Year
  Sex: Female

DRUGS (1)
  1. LEVETIRACETAM [Suspect]
     Indication: CONVULSION
     Dosage: 250 MG, TWICE DAILY, ORAL
     Route: 048

REACTIONS (7)
  - DIARRHOEA [None]
  - HYDRONEPHROSIS [None]
  - HYPERSENSITIVITY [None]
  - KIDNEY FIBROSIS [None]
  - RENAL FAILURE [None]
  - TUBULOINTERSTITIAL NEPHRITIS [None]
  - URETERIC OBSTRUCTION [None]
